FAERS Safety Report 4596154-7 (Version None)
Quarter: 2005Q1

REPORT INFORMATION
  Report Type: 
  Country: None (occurrence: None)
  Receive Date: 20050302
  Receipt Date: 20050221
  Transmission Date: 20050727
  Serious: Yes (Other)
  Sender: FDA-Public Use
  Company Number: GB-ROCHE-396187

PATIENT
  Age: 71 Year
  Sex: Male
  Weight: 48.7 kg

DRUGS (14)
  1. TAMIFLU [Suspect]
     Indication: INFLUENZA
     Route: 048
     Dates: start: 20050126, end: 20050204
  2. ZOPICLONE [Concomitant]
  3. PAROXETINE [Concomitant]
  4. PREDNISOLONE [Concomitant]
  5. PROMAZINE HCL [Concomitant]
  6. ALBUTEROL [Concomitant]
     Dosage: ON AN AS NEEDED BASIS (PRN)
     Route: 055
  7. SENNA [Concomitant]
     Dosage: DOSE REPORTED AS 7.5 MG 1-2 NOCTE
  8. SERETIDE [Concomitant]
     Dosage: STRENGTH REPORTED AS 125 MCG/PUFF.  DOSE REPORTED AS 125MCG X2 BD.
     Route: 055
  9. CALCICHEW D3 [Concomitant]
  10. COMBIVENT [Concomitant]
  11. VERAPAMIL [Concomitant]
  12. IRON SULPHATE [Concomitant]
  13. GAVISCON [Concomitant]
     Route: 048
  14. LANSOPRAZOLE [Concomitant]

REACTIONS (5)
  - CHROMATURIA [None]
  - DECREASED APPETITE [None]
  - FEELING ABNORMAL [None]
  - PROTEINURIA [None]
  - URINE ODOUR ABNORMAL [None]
